FAERS Safety Report 14962539 (Version 6)
Quarter: 2021Q3

REPORT INFORMATION
  Report Type: Spontaneous
  Country: US (occurrence: US)
  Receive Date: 20180601
  Receipt Date: 20210803
  Transmission Date: 20211014
  Serious: Yes (Other)
  Sender: FDA-Public Use
  Company Number: US-PFIZER INC-2018222627

PATIENT
  Age: 78 Year
  Sex: Female
  Weight: 77 kg

DRUGS (3)
  1. IBRANCE [Suspect]
     Active Substance: PALBOCICLIB
     Indication: BREAST CANCER METASTATIC
     Dosage: 100 MG, UNK (100MG, BY MOUTH IN THE EVEN WITH SUPPER)
     Route: 048
     Dates: start: 2016
  2. IBRANCE [Suspect]
     Active Substance: PALBOCICLIB
     Dosage: 100 MG
     Route: 048
  3. IBRANCE [Suspect]
     Active Substance: PALBOCICLIB
     Dosage: 100 MG, CYCLIC (ONCE PER DAY BY MOUTH, 21 DAYS ON, 7 DAYS OFF)
     Route: 048
     Dates: start: 201710

REACTIONS (8)
  - Peripheral swelling [Not Recovered/Not Resolved]
  - Nausea [Unknown]
  - Vomiting [Unknown]
  - Arthritis [Unknown]
  - Second primary malignancy [Unknown]
  - Malignant melanoma [Unknown]
  - Alopecia [Not Recovered/Not Resolved]
  - Circumstance or information capable of leading to medication error [Unknown]

NARRATIVE: CASE EVENT DATE: 2017
